FAERS Safety Report 5430873-5 (Version None)
Quarter: 2007Q3

REPORT INFORMATION
  Report Type: 
  Country: None (occurrence: None)
  Receive Date: 20070830
  Receipt Date: 20070123
  Transmission Date: 20080115
  Serious: Yes (Life-Threatening, Hospitalization, Other)
  Sender: FDA-Public Use
  Company Number: A0633743A

PATIENT
  Age: 53 Year
  Sex: Female
  Weight: 63.6 kg

DRUGS (5)
  1. WELLBUTRIN XL [Suspect]
     Indication: DEPRESSION
     Dosage: 300MG PER DAY
     Route: 048
     Dates: start: 20060703, end: 20060923
  2. PREDNISONE [Concomitant]
     Indication: ENCEPHALOPATHY
     Dosage: 60MG PER DAY
     Route: 048
     Dates: start: 20060815
  3. LEVOTHYROXINE SODIUM [Concomitant]
     Indication: HYPOTHYROIDISM
     Route: 048
     Dates: start: 20020201
  4. FOSAMAX [Concomitant]
     Indication: OSTEOPOROSIS
     Dosage: 70MG WEEKLY
     Route: 048
     Dates: start: 20060815
  5. RISPERDAL [Concomitant]
     Dosage: 1MG TWICE PER DAY
     Route: 048

REACTIONS (2)
  - GRAND MAL CONVULSION [None]
  - POSTICTAL STATE [None]
